FAERS Safety Report 22179139 (Version 2)
Quarter: 2023Q2

REPORT INFORMATION
  Report Type: Report from Study
  Country: US (occurrence: US)
  Receive Date: 20230406
  Receipt Date: 20230407
  Transmission Date: 20230722
  Serious: Yes (Death, Other)
  Sender: FDA-Public Use
  Company Number: US-ABBVIE-4716829

PATIENT
  Age: 70 Year
  Sex: Male

DRUGS (1)
  1. SKYRIZI [Suspect]
     Active Substance: RISANKIZUMAB-RZAA
     Indication: Psoriasis
     Route: 058
     Dates: start: 20220331, end: 2023

REACTIONS (3)
  - Cerebrovascular accident [Fatal]
  - Impaired work ability [Unknown]
  - Glossopharyngeal nerve paralysis [Unknown]

NARRATIVE: CASE EVENT DATE: 20230312
